FAERS Safety Report 8850161 (Version 10)
Quarter: 2013Q3

REPORT INFORMATION
  Report Type: Report from Study
  Country: GB (occurrence: GB)
  Receive Date: 20121019
  Receipt Date: 20130806
  Transmission Date: 20140515
  Serious: Yes (Congenital Anomaly)
  Sender: FDA-Public Use
  Company Number: GB-VIIV HEALTHCARE LIMITED-A0997942A

PATIENT
  Age: 1 Day
  Sex: Female
  Weight: 3.3 kg

DRUGS (9)
  1. ZIAGEN [Suspect]
     Indication: ANTIRETROVIRAL THERAPY
     Dosage: 600MGD PER DAY
     Route: 064
     Dates: start: 20120731, end: 20120906
  2. EPIVIR [Suspect]
     Indication: ANTIRETROVIRAL THERAPY
     Dosage: 300MGD PER DAY
     Route: 064
     Dates: start: 20120731, end: 20120906
  3. KALETRA [Suspect]
     Indication: ANTIRETROVIRAL THERAPY
     Dosage: 4TAB PER DAY
     Route: 064
     Dates: start: 20120731, end: 20120906
  4. TRUVADA [Suspect]
     Indication: ANTIRETROVIRAL THERAPY
     Dosage: 1TAB PER DAY
     Route: 064
     Dates: start: 20120907
  5. ISENTRESS [Suspect]
     Indication: ANTIRETROVIRAL THERAPY
     Dosage: 800MGD PER DAY
     Route: 064
     Dates: start: 20120907
  6. ALUVIA [Suspect]
     Indication: PRODUCT USED FOR UNKNOWN INDICATION
     Dosage: 4IUAX PER DAY
     Route: 064
     Dates: start: 20120731, end: 20120906
  7. RANITIDINE [Concomitant]
  8. OMEPRAZOLE [Concomitant]
  9. CALCIUM CARBONATE + COLECALCIFEROL [Concomitant]

REACTIONS (4)
  - Congenital cystic kidney disease [Unknown]
  - Kidney enlargement [Unknown]
  - Renal dysplasia [Unknown]
  - Foetal exposure during pregnancy [Unknown]
